FAERS Safety Report 6717786-3 (Version None)
Quarter: 2010Q2

REPORT INFORMATION
  Report Type: 
  Country: None (occurrence: None)
  Receive Date: 20100505
  Receipt Date: 20100426
  Transmission Date: 20101027
  Serious: Yes (Other)
  Sender: FDA-Public Use
  Company Number: JPI-P-010511

PATIENT
  Age: 45 Year
  Sex: Female

DRUGS (3)
  1. XYREM [Suspect]
     Indication: CATAPLEXY
     Dosage: 4.5 GM (2.25 GM, 2 IN 1 D), ORAL
     Route: 048
     Dates: start: 20090420, end: 20090701
  2. LEVETIRACETAM [Suspect]
     Indication: DRUG USE FOR UNKNOWN INDICATION
  3. PROPRANOLOL [Suspect]
     Indication: DRUG USE FOR UNKNOWN INDICATION

REACTIONS (13)
  - CONVULSION [None]
  - DISORIENTATION [None]
  - DRUG INTERACTION [None]
  - ENURESIS [None]
  - FEELING ABNORMAL [None]
  - GAIT DISTURBANCE [None]
  - HEADACHE [None]
  - IMPAIRED WORK ABILITY [None]
  - INITIAL INSOMNIA [None]
  - NASAL CONGESTION [None]
  - NAUSEA [None]
  - RHINORRHOEA [None]
  - TOOTHACHE [None]
